FAERS Safety Report 5052104-0 (Version None)
Quarter: 2006Q3

REPORT INFORMATION
  Report Type: 
  Country: None (occurrence: None)
  Receive Date: 20060711
  Receipt Date: 20060628
  Transmission Date: 20061208
  Serious: Yes (Hospitalization)
  Sender: FDA-Public Use
  Company Number: GXKR2006GB03825

PATIENT
  Age: 64 Year
  Sex: Female

DRUGS (2)
  1. CO-AMOXICLAV [Suspect]
     Indication: ABSCESS
     Dosage: 625 MG, TID, ORAL
     Route: 048
     Dates: start: 20060510, end: 20060517
  2. METRONIDAZOLE [Suspect]
     Indication: ABSCESS
     Dosage: 200 MG, TID, ORAL
     Route: 048
     Dates: start: 20060511, end: 20060518

REACTIONS (8)
  - ALANINE AMINOTRANSFERASE INCREASED [None]
  - BLOOD ALBUMIN INCREASED [None]
  - BLOOD ALKALINE PHOSPHATASE INCREASED [None]
  - BLOOD BILIRUBIN INCREASED [None]
  - GAMMA-GLUTAMYLTRANSFERASE INCREASED [None]
  - JAUNDICE [None]
  - LIVER FUNCTION TEST ABNORMAL [None]
  - PRURITUS GENERALISED [None]
